FAERS Safety Report 5077970-4 (Version None)
Quarter: 2006Q3

REPORT INFORMATION
  Report Type: 
  Country: None (occurrence: None)
  Receive Date: 20060811
  Receipt Date: 20060327
  Transmission Date: 20061208
  Serious: Yes (Other)
  Sender: FDA-Public Use
  Company Number: PHEH2006US04061

PATIENT
  Age: 51 Year
  Sex: Female

DRUGS (2)
  1. FEMARA [Suspect]
     Indication: BREAST CANCER
     Dosage: 2.5 MG, QD
     Route: 048
     Dates: start: 20050401
  2. ZOLADEX [Concomitant]
     Indication: BREAST CANCER
     Dosage: UNK, QMO
     Route: 042
     Dates: start: 20050401

REACTIONS (4)
  - HOT FLUSH [None]
  - MASTECTOMY [None]
  - MUSCULOSKELETAL STIFFNESS [None]
  - TINNITUS [None]
